FAERS Safety Report 16243238 (Version 1)
Quarter: 2019Q2

REPORT INFORMATION
  Report Type: Report from Study
  Country: JP (occurrence: JP)
  Receive Date: 20190426
  Receipt Date: 20190426
  Transmission Date: 20190711
  Serious: Yes (Hospitalization)
  Sender: FDA-Public Use
  Company Number: JP-ASTRAZENECA-2018SF54541

PATIENT
  Age: 24824 Day
  Sex: Male

DRUGS (14)
  1. NATRIX [Concomitant]
     Active Substance: INDAPAMIDE
     Indication: HYPERTENSION
     Route: 048
  2. OLMESARTAN [Concomitant]
     Active Substance: OLMESARTAN
     Indication: HYPERTENSION
     Route: 048
  3. BEZAFIBRATE [Concomitant]
     Active Substance: BEZAFIBRATE
     Indication: DYSLIPIDAEMIA
     Route: 048
  4. SEIROGAN TOI-A [Concomitant]
     Indication: DIARRHOEA
     Route: 048
     Dates: start: 20181109, end: 20181110
  5. DURVALUMAB. [Suspect]
     Active Substance: DURVALUMAB
     Indication: HEPATOCELLULAR CARCINOMA
     Route: 042
     Dates: start: 20181102, end: 20181102
  6. CALBLOCK TABLETS [Concomitant]
     Indication: HYPERTENSION
     Route: 048
  7. RABEPRAZOLE SODIUM. [Concomitant]
     Active Substance: RABEPRAZOLE SODIUM
     Indication: PROPHYLAXIS AGAINST GASTROINTESTINAL ULCER
     Route: 048
  8. URSODEOXYCHOLIC ACID [Concomitant]
     Active Substance: URSODIOL
     Indication: HEPATOCELLULAR CARCINOMA
     Route: 048
  9. BIOFERMIN (BERBERINE TANNATE, GERANIUM THUNBERGII, SCOPOLIA EXTRACT... [Concomitant]
     Indication: DIARRHOEA
     Route: 048
     Dates: start: 20181111, end: 20181113
  10. SELARA TABLETS 25MG [Concomitant]
     Indication: HYPERTENSION
     Route: 048
  11. DOXAZOSIN [Concomitant]
     Active Substance: DOXAZOSIN\DOXAZOSIN MESYLATE
     Indication: HYPERTENSION
     Route: 048
  12. TRAZENTA TABLETS 5MG [Concomitant]
     Indication: TYPE 2 DIABETES MELLITUS
     Route: 048
  13. POLAPREZINC [Concomitant]
     Active Substance: POLAPREZINC
     Indication: PROPHYLAXIS AGAINST GASTROINTESTINAL ULCER
     Route: 048
  14. LIVACT GRANULES [Concomitant]
     Indication: HYPOALBUMINAEMIA
     Dosage: 1 PACKET TID
     Route: 048

REACTIONS (1)
  - Hepatic function abnormal [Recovered/Resolved]

NARRATIVE: CASE EVENT DATE: 20181116
